FAERS Safety Report 7025057-3 (Version None)
Quarter: 2010Q4

REPORT INFORMATION
  Report Type: 
  Country: None (occurrence: None)
  Receive Date: 20101001
  Receipt Date: 20100708
  Transmission Date: 20110411
  Serious: Yes (Hospitalization, Other)
  Sender: FDA-Public Use
  Company Number: US-BAYER-201020527NA

PATIENT
  Age: 24 Year
  Sex: Female
  Weight: 66 kg

DRUGS (11)
  1. YAZ [Suspect]
     Indication: CONTRACEPTION
     Route: 048
     Dates: start: 20040101, end: 20100228
  2. YASMIN [Suspect]
     Indication: CONTRACEPTION
     Route: 048
     Dates: start: 20010101, end: 20040101
  3. SYNTHROID [Concomitant]
     Dates: start: 20000101
  4. NSAIDS [Concomitant]
     Dates: start: 20000101
  5. ANTIBIOTICS [Concomitant]
     Dosage: PRODUCTS' NAMES, DOSES, FREQUENCY, INDICATIONS ARE UNSPECIFIED
     Dates: start: 20000101
  6. HEART MEDICATION [Concomitant]
  7. CYMBALTA [Concomitant]
     Dates: start: 20080101
  8. ZYRTEC [Concomitant]
     Indication: PHARYNGITIS
  9. AMOXICILLIN [Concomitant]
     Indication: SINUSITIS
  10. LUPRON [Concomitant]
     Indication: SINUSITIS
  11. TAPAZOL [Concomitant]
     Indication: PHARYNGITIS
     Dosage: TOTAL DAILY DOSE: 20 MG  UNIT DOSE: 10 MG

REACTIONS (11)
  - ABDOMINAL PAIN [None]
  - ABORTION SPONTANEOUS [None]
  - AMENORRHOEA [None]
  - CHEST PAIN [None]
  - GALLBLADDER DISORDER [None]
  - HEART VALVE INCOMPETENCE [None]
  - HYPERHIDROSIS [None]
  - PALPITATIONS [None]
  - THYROID DISORDER [None]
  - UTERINE LEIOMYOMA [None]
  - VOMITING [None]
